FAERS Safety Report 4738003-X (Version None)
Quarter: 2005Q3

REPORT INFORMATION
  Report Type: 
  Country: None (occurrence: None)
  Receive Date: 20050805
  Receipt Date: 20050803
  Transmission Date: 20060218
  Serious: Yes (Hospitalization)
  Sender: FDA-Public Use
  Company Number: 200512273GDS

PATIENT
  Age: 40 Year
  Sex: Male

DRUGS (2)
  1. ASPIRIN [Suspect]
     Indication: ANTIPLATELET THERAPY
  2. WARFARIN [Suspect]
     Indication: ANTICOAGULANT THERAPY

REACTIONS (6)
  - CONTUSION [None]
  - EPILEPSY [None]
  - EXTRAVASATION [None]
  - FALL [None]
  - HAEMORRHAGE [None]
  - RETROPERITONEAL HAEMATOMA [None]
